FAERS Safety Report 5192471-0 (Version None)
Quarter: 2006Q4

REPORT INFORMATION
  Report Type: 
  Country: None (occurrence: None)
  Receive Date: 20061220
  Receipt Date: 20061204
  Transmission Date: 20070319
  Serious: Yes (Hospitalization)
  Sender: FDA-Public Use
  Company Number: 2006002279

PATIENT
  Age: 82 Year
  Sex: Male
  Weight: 60 kg

DRUGS (1)
  1. ERLOTINIB (TABLET) (ERLOTINIB HCL) [Suspect]
     Indication: RENAL CELL CARCINOMA STAGE UNSPECIFIED
     Dosage: 150 MG (QD), ORAL
     Route: 048
     Dates: start: 20051212, end: 20061113

REACTIONS (4)
  - ABDOMINAL DISTENSION [None]
  - ABDOMINAL PAIN [None]
  - DIARRHOEA [None]
  - PNEUMATOSIS INTESTINALIS [None]
